FAERS Safety Report 4364658-8 (Version None)
Quarter: 2004Q2

REPORT INFORMATION
  Report Type: 
  Country: None (occurrence: None)
  Receive Date: 20040521
  Receipt Date: 20040503
  Transmission Date: 20050107
  Serious: Yes (Other)
  Sender: FDA-Public Use
  Company Number: USA040566563

PATIENT
  Age: 12 Year

DRUGS (1)
  1. STRATTERA [Suspect]
     Dosage: 18 MG DAY

REACTIONS (1)
  - GLAUCOMA [None]
